FAERS Safety Report 7306576-9 (Version None)
Quarter: 2011Q1

REPORT INFORMATION
  Report Type: 
  Country: None (occurrence: None)
  Receive Date: 20110222
  Receipt Date: 20110207
  Transmission Date: 20110831
  Serious: Yes (Other)
  Sender: FDA-Public Use
  Company Number: DE-BRISTOL-MYERS SQUIBB COMPANY-15490261

PATIENT
  Age: 87 Year
  Sex: Female
  Weight: 77 kg

DRUGS (9)
  1. DIGIMERCK [Concomitant]
     Indication: ARRHYTHMIA
     Dosage: 1 DF: 0.07 UNIT NOS
  2. MARCUMAR [Concomitant]
     Indication: TACHYARRHYTHMIA
     Dosage: DOSE ACCORDING TO QUICK VALUE.
  3. RAMIPRIL [Concomitant]
     Indication: CARDIAC FAILURE
     Dosage: 1 DF: 10 UNIT NOS
  4. BISOPROLOL [Concomitant]
     Indication: HYPERTENSION
     Dosage: 1 DF: 1/2 UNIT NOS
  5. RAMIPRIL [Concomitant]
     Indication: HYPERTENSION
     Dosage: 1 DF: 10 UNIT NOS
  6. ONGLYZA [Suspect]
     Indication: TYPE 2 DIABETES MELLITUS
     Dosage: DAILY DOSAGE: 1 UNITS NOS
     Dates: start: 20101111, end: 20101129
  7. GLIMEPIRIDE [Concomitant]
     Indication: DIABETES MELLITUS
  8. AMLODIPINE [Suspect]
     Indication: HYPERTENSION
  9. TORSEMIDE [Concomitant]
     Indication: OEDEMA
     Dosage: 1 DF: 10 UNIT NOS

REACTIONS (5)
  - RENAL FAILURE [None]
  - HAEMATOCRIT DECREASED [None]
  - CONDITION AGGRAVATED [None]
  - TREATMENT NONCOMPLIANCE [None]
  - CARDIAC FAILURE [None]
